FAERS Safety Report 6954975-7 (Version None)
Quarter: 2010Q3

REPORT INFORMATION
  Report Type: 
  Country: None (occurrence: None)
  Receive Date: 20100825
  Receipt Date: 20100802
  Transmission Date: 20110219
  Serious: Yes (Other)
  Sender: FDA-Public Use
  Company Number: 2010-00018

PATIENT
  Sex: Female

DRUGS (1)
  1. AVEENO PROT SUNBLOCK SPF55 ACTIVE INGREDIENTS: AVOBENZONE3% HOMOSALATE [Suspect]
     Indication: PROPHYLAXIS AGAINST SOLAR RADIATION
     Dosage: TOPICAL
     Route: 061
     Dates: start: 19980802

REACTIONS (1)
  - SKIN CANCER [None]
